FAERS Safety Report 19722070 (Version 3)
Quarter: 2021Q3

REPORT INFORMATION
  Report Type: Report from Study
  Country: AT (occurrence: AT)
  Receive Date: 20210819
  Receipt Date: 20210831
  Transmission Date: 20211014
  Serious: Yes (Other)
  Sender: FDA-Public Use
  Company Number: AT-MYLANLABS-2021M1053568

PATIENT
  Age: 79 Year
  Sex: Female
  Weight: 48 kg

DRUGS (32)
  1. FULVESTRANT. [Suspect]
     Active Substance: FULVESTRANT
     Indication: BREAST CANCER
     Dosage: 500 MILLIGRAM, Q28D
     Route: 030
     Dates: start: 20190919, end: 20191112
  2. PERTUZUMAB. [Suspect]
     Active Substance: PERTUZUMAB
     Indication: BREAST CANCER
     Dosage: 840 MILLIGRAM, Q3W (MOST RECENT DOSE PRIOR)
     Route: 042
     Dates: start: 20180810
  3. LASIX [Concomitant]
     Active Substance: FUROSEMIDE
     Indication: OEDEMA PERIPHERAL
     Dosage: UNK
     Dates: start: 20191106, end: 20191115
  4. KONAKION [Concomitant]
     Active Substance: PHYTONADIONE
     Dosage: UNK
     Dates: start: 20191115
  5. ENTEROBENE [Concomitant]
     Indication: DIARRHOEA
     Dosage: UNK (ONGOING = CHECKED)
     Dates: start: 20181127
  6. FORTECORTIN                        /00016001/ [Concomitant]
     Active Substance: DEXAMETHASONE
     Dosage: UNK
     Dates: start: 20191115
  7. TAMOXIFEN [Suspect]
     Active Substance: TAMOXIFEN
     Indication: BREAST CANCER
     Dosage: 20 MILLIGRAM
     Route: 048
     Dates: start: 20190819, end: 20190827
  8. PALBOCICLIB [Suspect]
     Active Substance: PALBOCICLIB
     Indication: BREAST CANCER
     Dosage: 125 MILLIGRAM (MOST RECENT DOSE 18/OCT/2019)
     Route: 048
     Dates: start: 20190919
  9. GUTTALAX [Concomitant]
     Dosage: UNK
     Dates: start: 20191115
  10. CAPHOSOL [Concomitant]
     Active Substance: CALCIUM CHLORIDE\SODIUM CHLORIDE\SODIUM PHOSPHATE, DIBASIC, ANHYDROUS\SODIUM PHOSPHATE, MONOBASIC, ANHYDROUS
     Indication: MUCOSAL INFLAMMATION
     Dosage: UNK (ONGOING = NOT CHECKED)
     Dates: start: 20180921
  11. PASPERTIN                          /00041902/ [Concomitant]
     Active Substance: METOCLOPRAMIDE HYDROCHLORIDE
     Indication: NAUSEA
     Dosage: UNK
     Dates: start: 20191108, end: 20191115
  12. PARKEMED [Concomitant]
     Active Substance: MEFENAMIC ACID
     Indication: ARTHRALGIA
     Dosage: UNK (ONGOING = CHECKED)
     Dates: start: 20180914
  13. PACLITAXEL. [Suspect]
     Active Substance: PACLITAXEL
     Indication: BREAST CANCER
     Dosage: 113.69 MILLIGRAM, QW (MOST RECENT DOSE 14/SEP/2018)
     Route: 042
     Dates: start: 20180810
  14. SERACTIL [Concomitant]
     Active Substance: DEXIBUPROFEN
     Indication: OSTEONECROSIS OF JAW
     Dosage: UNK
     Dates: start: 20190725, end: 20191015
  15. TRASTUZUMAB MYLAN [Suspect]
     Active Substance: TRASTUZUMAB
     Indication: BREAST CANCER
     Dosage: 384 MILLIGRAM, Q3W (MOST RECENT DOSE PRIO)
     Route: 042
     Dates: start: 20180810, end: 20180831
  16. TRITTICO [Concomitant]
     Active Substance: TRAZODONE HYDROCHLORIDE
     Dosage: UNK (ONGOING = CHECKED)
  17. CIPROXINE                          /00697201/ [Concomitant]
     Active Substance: CIPROFLOXACIN
     Indication: GASTROENTERITIS RADIATION
     Dosage: UNK (ONGOING = NOT CHECKED)
     Dates: start: 20181118
  18. LETROZOLE. [Suspect]
     Active Substance: LETROZOLE
     Indication: BREAST CANCER
     Dosage: 2.5 MILLIGRAM, QD (ON 13/JUN/2019,)
     Route: 048
     Dates: start: 20181029
  19. TRASTUZUMAB MYLAN [Suspect]
     Active Substance: TRASTUZUMAB
     Dosage: 384 MILLIGRAM, Q3W
     Route: 042
     Dates: start: 20180928, end: 20180928
  20. VENDAL                             /00036302/ [Concomitant]
     Active Substance: MORPHINE SULFATE
     Indication: DYSPNOEA
     Dosage: UNK
     Dates: start: 20191111
  21. PANTOLOC                           /01263201/ [Concomitant]
     Active Substance: PANTOPRAZOLE SODIUM
     Indication: ABDOMINAL PAIN UPPER
     Dosage: UNK (ONGOING = NOT CHECKED)
     Dates: start: 20181109, end: 20191101
  22. MYCOSTATIN [Concomitant]
     Active Substance: NYSTATIN
     Indication: MUCOSAL INFLAMMATION
     Dosage: UNK (ONGOING = NOT CHECKED)
     Dates: start: 20190819
  23. ANTIFLAT [Concomitant]
     Dosage: UNK (ONGOING = CHECKED)
     Dates: start: 20181126
  24. TAZONAM [Concomitant]
     Active Substance: TAZOBACTAM
     Indication: INFECTION
     Dosage: UNK (ONGOING = NOT CHECKED)
     Dates: start: 20191102, end: 20191113
  25. AVELOX [Concomitant]
     Active Substance: MOXIFLOXACIN HYDROCHLORIDE
     Indication: OSTEONECROSIS OF JAW
     Dosage: UNK (ONGOING = NOT CHECKED)
     Dates: start: 20190919, end: 20191101
  26. TRASTUZUMAB MYLAN [Suspect]
     Active Substance: TRASTUZUMAB
     Dosage: 276 MILLIGRAM, Q3W
     Route: 042
     Dates: start: 20181019, end: 20181019
  27. CEOLAT [Concomitant]
     Dosage: UNK
     Dates: start: 20191115
  28. MOLAXOLE [Concomitant]
     Active Substance: POLYETHYLENE GLYCOL 3350\POTASSIUM CHLORIDE\SODIUM BICARBONATE\SODIUM CHLORIDE
     Dosage: UNK
     Dates: start: 20191115
  29. TRASTUZUMAB MYLAN [Suspect]
     Active Substance: TRASTUZUMAB
     Indication: BREAST CANCER
     Dosage: 154 MILLIGRAM, Q3W
     Route: 042
     Dates: start: 20190704, end: 20190704
  30. TEMESTA                            /00273201/ [Concomitant]
     Active Substance: LORAZEPAM
     Dosage: UNK (ONGOING = CHECKED)
  31. NOVALGINA [Concomitant]
     Active Substance: METAMIZOLE SODIUM
     Dosage: UNK (ONGOING = NOT CHECKED)
     Dates: start: 20181126, end: 20191103
  32. PACLITAXEL ALBUMIN [Suspect]
     Active Substance: PACLITAXEL
     Indication: BREAST CANCER
     Dosage: 142.11 MILLIGRAM, QW (MOST RECENT DOSE)
     Route: 042
     Dates: start: 20180928, end: 20181005

REACTIONS (3)
  - Ascites [Recovering/Resolving]
  - Neutrophil count decreased [Recovered/Resolved]
  - White blood cell count decreased [Recovered/Resolved]

NARRATIVE: CASE EVENT DATE: 20191004
